FAERS Safety Report 8235318-8 (Version None)
Quarter: 2012Q1

REPORT INFORMATION
  Report Type: 
  Country: None (occurrence: None)
  Receive Date: 20120326
  Receipt Date: 20120316
  Transmission Date: 20120608
  Serious: Yes (Other)
  Sender: FDA-Public Use
  Company Number: US-PURDUE-USA-2012-0083986

PATIENT
  Sex: Female

DRUGS (2)
  1. OXYCODONE HCL [Suspect]
     Indication: PAIN
  2. MS CONTIN [Suspect]
     Indication: PAIN

REACTIONS (2)
  - SPINAL FRACTURE [None]
  - INADEQUATE ANALGESIA [None]
